FAERS Safety Report 7030880-5 (Version None)
Quarter: 2010Q4

REPORT INFORMATION
  Report Type: 
  Country: None (occurrence: None)
  Receive Date: 20101006
  Receipt Date: 20101005
  Transmission Date: 20110411
  Serious: Yes (Hospitalization)
  Sender: FDA-Public Use
  Company Number: US-BRISTOL-MYERS SQUIBB COMPANY-15318595

PATIENT
  Age: 83 Year
  Sex: Female

DRUGS (5)
  1. COUMADIN [Suspect]
  2. METOPROLOL TARTRATE [Concomitant]
  3. FENTANYL-75 [Concomitant]
  4. OXYCODONE [Concomitant]
     Dosage: 10 MG IN THE MRNG 12 MG AT NYT
  5. BLOOD PRESSURE MEDICATION [Concomitant]

REACTIONS (5)
  - DIARRHOEA [None]
  - HYPOTENSION [None]
  - INTERNATIONAL NORMALISED RATIO INCREASED [None]
  - URINARY TRACT INFECTION [None]
  - VOMITING [None]
